FAERS Safety Report 5204758-3 (Version None)
Quarter: 2006Q4

REPORT INFORMATION
  Report Type: 
  Country: None (occurrence: None)
  Receive Date: 20061026
  Receipt Date: 20060925
  Transmission Date: 20070319
  Serious: Yes (Other)
  Sender: FDA-Public Use
  Company Number: 2006118182

PATIENT

DRUGS (3)
  1. LYRICA [Suspect]
  2. DILAUDID [Suspect]
  3. DURAGESIC-100 [Suspect]

REACTIONS (2)
  - DYSPNOEA [None]
  - MALAISE [None]
